FAERS Safety Report 6142769-4 (Version None)
Quarter: 2009Q2

REPORT INFORMATION
  Report Type: 
  Country: None (occurrence: None)
  Receive Date: 20090403
  Receipt Date: 20090326
  Transmission Date: 20091009
  Serious: Yes (Other)
  Sender: FDA-Public Use
  Company Number: FR-AMGEN-US331539

PATIENT
  Sex: Female
  Weight: 12.8 kg

DRUGS (1)
  1. ENBREL [Suspect]
     Indication: JUVENILE ARTHRITIS
     Route: 058
     Dates: start: 20070201, end: 20081027

REACTIONS (4)
  - CONDITION AGGRAVATED [None]
  - JUVENILE ARTHRITIS [None]
  - KERATOPATHY [None]
  - UVEITIS [None]
